FAERS Safety Report 5332866-5 (Version None)
Quarter: 2007Q2

REPORT INFORMATION
  Report Type: 
  Country: None (occurrence: None)
  Receive Date: 20070521
  Receipt Date: 20070506
  Transmission Date: 20071010
  Serious: Yes (Hospitalization, Other)
  Sender: FDA-Public Use
  Company Number: A-CH2007-14702

PATIENT
  Age: 17 Year
  Sex: Male

DRUGS (5)
  1. ZAVESCA [Suspect]
     Indication: NIEMANN-PICK DISEASE
     Dosage: 200 MG, TID,ORAL
     Route: 048
     Dates: start: 20070126, end: 20070506
  2. OLANZAPINE [Concomitant]
  3. RISPERIDONE [Concomitant]
  4. VALPROATE SODIUM [Concomitant]
  5. AMOXYCILLIN (AMOXYCILLIN) [Concomitant]

REACTIONS (3)
  - DEHYDRATION [None]
  - DIARRHOEA [None]
  - PYREXIA [None]
